FAERS Safety Report 12840708 (Version 6)
Quarter: 2017Q1

REPORT INFORMATION
  Report Type: Report from Study
  Country: None (occurrence: FR)
  Receive Date: 20161012
  Receipt Date: 20170317
  Transmission Date: 20170428
  Serious: Yes (Hospitalization)
  Sender: FDA-Public Use
  Company Number: FR-ABBVIE-16P-056-1714222-00

PATIENT
  Age: 69 Year
  Sex: Female
  Weight: 53 kg

DRUGS (50)
  1. BACTRIM [Concomitant]
     Active Substance: SULFAMETHOXAZOLE\TRIMETHOPRIM
     Indication: INFECTION PROPHYLAXIS
     Dates: start: 20160617
  2. RED BLOOD CELLS [Concomitant]
     Active Substance: HUMAN RED BLOOD CELL
     Dates: start: 20160827, end: 20160828
  3. POLARAMINE [Concomitant]
     Active Substance: DEXCHLORPHENIRAMINE MALEATE
     Indication: PREMEDICATION
     Dates: start: 20160817, end: 20160817
  4. PARACETAMOL [Concomitant]
     Active Substance: ACETAMINOPHEN
     Indication: PREMEDICATION
     Dates: start: 20160929, end: 20160929
  5. VENETOCLAX [Suspect]
     Active Substance: VENETOCLAX
     Indication: B-CELL LYMPHOMA
     Dosage: RECENT DOSE (800 MG) PRIOR TO FN#1 26AUG16;FN#216SEP16; AE#12 30SEP16
     Route: 048
     Dates: start: 20160620
  6. POLARAMINE [Concomitant]
     Active Substance: DEXCHLORPHENIRAMINE MALEATE
     Dates: start: 20160929, end: 20160929
  7. PERFALGAN [Concomitant]
     Active Substance: ACETAMINOPHEN
     Dates: start: 20160817, end: 20160817
  8. PHOSPHONEUROS [Concomitant]
     Active Substance: CALCIUM PHOSPHATE, DIBASIC, ANHYDROUS\MAGNESIUM GLYCEROPHOSPHATE\PHOSPHORIC ACID\SODIUM PHOSPHATE, DIBASIC
     Indication: HYPOPHOSPHATAEMIA
     Dates: start: 20160805, end: 20160805
  9. ZOMETA [Concomitant]
     Active Substance: ZOLEDRONIC ACID
     Indication: PROPHYLAXIS
     Dates: start: 20160813, end: 20160813
  10. ALTIZIDE [Concomitant]
     Active Substance: ALTHIAZIDE
     Indication: HYPERTENSION
  11. INEXIUM [Concomitant]
     Active Substance: ESOMEPRAZOLE
     Indication: GASTROOESOPHAGEAL REFLUX DISEASE
  12. LEVEMIR [Concomitant]
     Active Substance: INSULIN DETEMIR
     Indication: DIABETES MELLITUS INADEQUATE CONTROL
     Dates: start: 20160729
  13. AMIKACINE [Concomitant]
     Active Substance: AMIKACIN
     Indication: ESCHERICHIA PYELONEPHRITIS
     Dates: start: 20160805, end: 20160805
  14. PERFALGAN [Concomitant]
     Active Substance: ACETAMINOPHEN
     Indication: PREMEDICATION
     Dates: start: 20160728, end: 20160728
  15. SOLU-MEDROL [Concomitant]
     Active Substance: METHYLPREDNISOLONE SODIUM SUCCINATE
     Indication: HEMIPARESIS
     Dates: start: 20160804, end: 20160804
  16. PHOCYTAN [Concomitant]
     Active Substance: .ALPHA.-GLUCOSE-1-PHOSPHATE
     Indication: HYPOPHOSPHATAEMIA
     Dates: start: 20160805, end: 20160811
  17. POLARAMINE [Concomitant]
     Active Substance: DEXCHLORPHENIRAMINE MALEATE
     Dates: start: 20160929, end: 20160929
  18. PREDNISONE. [Suspect]
     Active Substance: PREDNISONE
     Indication: B-CELL LYMPHOMA
     Dosage: RECENT DOSES(100 MG) P/T  FN AE^S 21AUG16 + 12SEP16;AE#12 30SEP16
     Route: 048
     Dates: start: 20160616
  19. METFORMIN [Concomitant]
     Active Substance: METFORMIN HYDROCHLORIDE
     Indication: DIABETES MELLITUS
  20. SKENAN [Concomitant]
     Active Substance: MORPHINE SULFATE
     Indication: PAIN
  21. POLARAMINE [Concomitant]
     Active Substance: DEXCHLORPHENIRAMINE MALEATE
     Dates: start: 20160908, end: 20160908
  22. NACL .9% [Concomitant]
     Indication: HYPONATRAEMIA
     Dates: start: 20160805, end: 20160805
  23. ZARZIO 30 [Concomitant]
     Dates: start: 20160822, end: 20160826
  24. POLARAMINE [Concomitant]
     Active Substance: DEXCHLORPHENIRAMINE MALEATE
     Dates: start: 20160908, end: 20160908
  25. EPOETIN ALFA [Concomitant]
     Active Substance: ERYTHROPOIETIN
     Indication: ANAEMIA
     Dates: start: 20160818
  26. TAVANIC [Concomitant]
     Active Substance: LEVOFLOXACIN
     Indication: ESCHERICHIA INFECTION
     Dates: start: 20160924
  27. RITUXIMAB [Suspect]
     Active Substance: RITUXIMAB
     Indication: B-CELL LYMPHOMA
     Dosage: RECENT DOSE(550 MG) PRIOR TO  FN AE^S ONSET 17AUG16 + 08SEP16;AE#12 (555MG) 29SEP16
     Route: 042
     Dates: start: 20160616
  28. ZELITREX [Concomitant]
     Active Substance: VALACYCLOVIR HYDROCHLORIDE
     Indication: PRODUCT USED FOR UNKNOWN INDICATION
     Dates: start: 20160616
  29. LEDERFOLINE [Concomitant]
     Active Substance: LEUCOVORIN CALCIUM
     Indication: INFECTION PROPHYLAXIS
     Dates: start: 20160616
  30. LOVENOX [Concomitant]
     Active Substance: ENOXAPARIN SODIUM
     Indication: PRODUCT USED FOR UNKNOWN INDICATION
     Dates: start: 20160728
  31. POLARAMINE [Concomitant]
     Active Substance: DEXCHLORPHENIRAMINE MALEATE
     Dates: start: 20160817, end: 20160817
  32. TAZOCILLINE [Concomitant]
     Active Substance: PIPERACILLIN SODIUM\TAZOBACTAM SODIUM
     Indication: ESCHERICHIA PYELONEPHRITIS
     Dates: start: 20160805, end: 20160805
  33. ZARZIO 30 [Concomitant]
     Indication: PROPHYLAXIS
     Dates: start: 20160802, end: 20160806
  34. DOXORUBICIN [Suspect]
     Active Substance: DOXORUBICIN
     Indication: B-CELL LYMPHOMA
     Dosage: RECENT DOSES(74 MG) P/T  FN AE^S 17AUG16 + 08SEP16;AE#12 29SEP16
     Route: 042
     Dates: start: 20160617
  35. VINCRISTINE [Suspect]
     Active Substance: VINCRISTINE
     Indication: B-CELL LYMPHOMA
     Dosage: RECENT DOSES(2 MG) P/T FN  AE^S  17AUG16 + 08SEP16;AE#12 29SEP16
     Route: 042
     Dates: start: 20160617
  36. ZOPHREN [Concomitant]
     Active Substance: ONDANSETRON
     Indication: NAUSEA
     Dates: start: 20160617
  37. ZOPHREN [Concomitant]
     Active Substance: ONDANSETRON
     Indication: VOMITING
  38. PRIMPERAN [Concomitant]
     Active Substance: METOCLOPRAMIDE HYDROCHLORIDE
     Indication: NAUSEA
     Dates: start: 20160622
  39. PERFALGAN [Concomitant]
     Active Substance: ACETAMINOPHEN
     Dates: start: 20160908, end: 20160908
  40. CLAFORAN [Concomitant]
     Active Substance: CEFOTAXIME SODIUM
     Indication: ESCHERICHIA INFECTION
     Dates: start: 20160919, end: 20160920
  41. CYCLOPHOSPHAMIDE. [Suspect]
     Active Substance: CYCLOPHOSPHAMIDE
     Indication: B-CELL LYMPHOMA
     Dosage: RECENT DOSES(1100 MG) P/T  FN AE^ST 17AUG16 + 08SEP16;AE#12 29SEP16
     Route: 042
     Dates: start: 20160617
  42. SPIRONOLACTONE. [Concomitant]
     Active Substance: SPIRONOLACTONE
     Indication: HYPERTENSION
  43. ACTISKENAN [Concomitant]
     Active Substance: MORPHINE SULFATE
     Indication: PAIN
  44. SIMVASTATINE [Concomitant]
     Active Substance: SIMVASTATIN
     Indication: HYPERCHOLESTEROLAEMIA
  45. POLARAMINE [Concomitant]
     Active Substance: DEXCHLORPHENIRAMINE MALEATE
     Indication: PREMEDICATION
     Dates: start: 20160728, end: 20160728
  46. DIFFU K [Concomitant]
     Active Substance: POTASSIUM CHLORIDE
     Indication: HYPOKALAEMIA
     Dates: start: 20160805, end: 20160805
  47. RED BLOOD CELLS [Concomitant]
     Active Substance: HUMAN RED BLOOD CELL
     Indication: ANAEMIA
     Dates: start: 20160804, end: 20160804
  48. RED BLOOD CELLS [Concomitant]
     Active Substance: HUMAN RED BLOOD CELL
     Dates: start: 20160919, end: 20160920
  49. CLAFORAN [Concomitant]
     Active Substance: CEFOTAXIME SODIUM
     Indication: PYELONEPHRITIS
     Dates: start: 20160805, end: 20160813
  50. ROCEPHINE [Concomitant]
     Active Substance: CEFTRIAXONE SODIUM
     Indication: ESCHERICHIA INFECTION
     Dates: start: 20160920, end: 20160923

REACTIONS (3)
  - Inflammation [Recovered/Resolved]
  - Febrile neutropenia [Recovered/Resolved]
  - Febrile neutropenia [Recovered/Resolved]

NARRATIVE: CASE EVENT DATE: 20160826
